FAERS Safety Report 7774692-3 (Version None)
Quarter: 2011Q3

REPORT INFORMATION
  Report Type: 
  Country: None (occurrence: None)
  Receive Date: 20110923
  Receipt Date: 20110913
  Transmission Date: 20111222
  Serious: Yes (Other)
  Sender: FDA-Public Use
  Company Number: US-JNJFOC-20110810191

PATIENT
  Sex: Male

DRUGS (16)
  1. BACLOFEN [Concomitant]
     Route: 065
  2. HYDROCODONE BITARTRATE AND ACETAMINOPHEN [Concomitant]
     Route: 065
  3. NORVASC [Concomitant]
     Indication: HYPERTENSION
     Route: 065
  4. PREZISTA [Suspect]
     Indication: HIV INFECTION
     Route: 048
     Dates: start: 20080701
  5. ASPIRIN [Concomitant]
     Route: 065
  6. NORVIR [Concomitant]
     Indication: HIV INFECTION
     Route: 065
  7. GARDASIL [Concomitant]
     Route: 065
     Dates: start: 20101001
  8. QUINAPRIL HCL [Concomitant]
     Indication: HYPERTENSION
     Route: 065
  9. CRESTOR [Concomitant]
     Indication: BLOOD CHOLESTEROL INCREASED
     Route: 065
  10. CAVERJECT [Concomitant]
     Route: 065
  11. LORAZEPAM [Concomitant]
     Route: 065
  12. INTELENCE [Suspect]
     Indication: HIV INFECTION
     Route: 048
     Dates: start: 20080701
  13. SELZENTRY [Suspect]
     Indication: HIV INFECTION
     Route: 065
     Dates: start: 20080701
  14. TESTOSTERONE ENANTHATE [Concomitant]
     Route: 030
  15. DICLOFENAC SODIUM [Concomitant]
     Indication: BACK PAIN
     Route: 065
  16. TRUVADA [Concomitant]
     Indication: HIV INFECTION
     Route: 065

REACTIONS (2)
  - DYSTONIA [None]
  - TARDIVE DYSKINESIA [None]
